FAERS Safety Report 22303273 (Version 1)
Quarter: 2023Q2

REPORT INFORMATION
  Report Type: Spontaneous
  Country: US (occurrence: None)
  Receive Date: 20230509
  Receipt Date: 20230509
  Transmission Date: 20230721
  Serious: Yes (Hospitalization)
  Sender: FDA-Public Use
  Company Number: None

PATIENT
  Sex: Male

DRUGS (2)
  1. AMBRISENTAN [Suspect]
     Active Substance: AMBRISENTAN
     Indication: Pulmonary arterial hypertension
     Dosage: FREQUENCY : DAILY;?
     Route: 048
     Dates: start: 202305
  2. REMODULIN [Suspect]
     Active Substance: TREPROSTINIL

REACTIONS (6)
  - Pain in extremity [None]
  - Nausea [None]
  - Dyspnoea [None]
  - Chest pain [None]
  - Muscle spasms [None]
  - Oedema peripheral [None]
